FAERS Safety Report 10184694 (Version 1)
Quarter: 2014Q2

REPORT INFORMATION
  Report Type: Report from Study
  Country: US (occurrence: US)
  Receive Date: 20140521
  Receipt Date: 20140521
  Transmission Date: 20141212
  Serious: Yes (Other)
  Sender: FDA-Public Use
  Company Number: US-ROCHE-1403269

PATIENT
  Sex: Female

DRUGS (11)
  1. LUCENTIS [Suspect]
     Indication: MACULAR DEGENERATION
     Dosage: RIGHT EYE
     Route: 065
  2. AVASTIN [Suspect]
     Indication: PRODUCT USED FOR UNKNOWN INDICATION
     Dosage: RIGHT EYE
     Route: 065
  3. SIMVASTATIN [Concomitant]
     Route: 065
  4. LISINOPRIL [Concomitant]
     Route: 065
  5. OMEPRAZOLE [Concomitant]
     Route: 065
  6. LUMIGAN [Concomitant]
     Dosage: 1 EACH EYE DAILY
     Route: 065
  7. BRIMONIDINE [Concomitant]
     Dosage: BOTH EYES
     Route: 065
  8. XARELTO [Concomitant]
     Dosage: AT DINNER
     Route: 065
  9. PRESERVISION AREDS [Concomitant]
     Route: 065
  10. SYSTANE ULTRA [Concomitant]
  11. DIGOXIN [Concomitant]

REACTIONS (3)
  - Blindness [Unknown]
  - Visual impairment [Unknown]
  - Visual field defect [Unknown]
